FAERS Safety Report 9458485 (Version 1)
Quarter: 2013Q3

REPORT INFORMATION
  Report Type: Spontaneous
  Country: ES (occurrence: ES)
  Receive Date: 20130814
  Receipt Date: 20130814
  Transmission Date: 20140515
  Serious: Yes (Other)
  Sender: FDA-Public Use
  Company Number: ES-PFIZER INC-2013230476

PATIENT
  Age: 2 Year
  Sex: Female

DRUGS (4)
  1. DOXORUBICIN HCL [Suspect]
     Indication: NEPHROBLASTOMA
     Dosage: UNK
  2. CARBOPLATIN [Suspect]
     Indication: NEPHROBLASTOMA
     Dosage: UNK
  3. ETOPOSIDE [Suspect]
     Indication: NEPHROBLASTOMA
     Dosage: UNK
  4. CYCLOPHOSPHAMIDE [Suspect]
     Indication: NEPHROBLASTOMA
     Dosage: UNK

REACTIONS (2)
  - Staphylococcal bacteraemia [Unknown]
  - Neutropenia [Unknown]
